FAERS Safety Report 4399543-9 (Version None)
Quarter: 2004Q3

REPORT INFORMATION
  Report Type: 
  Country: None (occurrence: None)
  Receive Date: 20040716
  Receipt Date: 20040505
  Transmission Date: 20050211
  Serious: Yes (Other)
  Sender: FDA-Public Use
  Company Number: FR-GLAXOSMITHKLINE-B0332151A

PATIENT
  Age: 74 Year
  Sex: Female
  Weight: 58 kg

DRUGS (7)
  1. AVANDIA [Suspect]
     Dosage: 4MG PER DAY
     Route: 048
     Dates: start: 20031117, end: 20040414
  2. GLUCOR [Concomitant]
     Dosage: 50MG THREE TIMES PER DAY
     Route: 048
  3. LIPANTHYL 200 [Concomitant]
     Dosage: 200MG PER DAY
     Route: 048
  4. PLAVIX [Concomitant]
     Dosage: 1UNIT PER DAY
     Route: 048
  5. FONZYLANE [Concomitant]
     Dosage: 300MG TWICE PER DAY
     Route: 048
  6. DITROPAN [Concomitant]
     Dosage: 1UNIT PER DAY
     Route: 048
  7. XYZAL [Concomitant]
     Dosage: 1UNIT PER DAY
     Route: 048

REACTIONS (3)
  - DYSPNOEA [None]
  - NON-OBSTRUCTIVE CARDIOMYOPATHY [None]
  - PULMONARY OEDEMA [None]
